FAERS Safety Report 9217717 (Version 1)
Quarter: 2013Q2

REPORT INFORMATION
  Report Type: Spontaneous
  Country: BE (occurrence: BE)
  Receive Date: 20130408
  Receipt Date: 20130408
  Transmission Date: 20140414
  Serious: Yes (Hospitalization, Other)
  Sender: FDA-Public Use
  Company Number: BE-BAYER-2013-043470

PATIENT
  Age: 67 Year
  Sex: Female

DRUGS (8)
  1. CARDIOASPIRINE [Suspect]
     Indication: INFARCTION
     Dosage: UNK UNK, QD
     Route: 048
     Dates: start: 20121010, end: 20130130
  2. CARDIOASPIRINE [Interacting]
     Indication: STENT PLACEMENT
  3. TICAGRELOR [Interacting]
     Indication: INFARCTION
     Dosage: UNK UNK, BID
     Route: 048
     Dates: start: 20121010, end: 20130130
  4. TICAGRELOR [Interacting]
     Indication: STENT PLACEMENT
  5. L-THYROXINE [Concomitant]
  6. BISOPROLOL [Concomitant]
     Dosage: DAILY DOSE 1.25 MG
     Route: 048
     Dates: start: 20121010
  7. COVERSYL [Concomitant]
     Indication: INFARCTION
     Dosage: DAILY DOSE 2.5 MG
  8. SIMVASTATIN [Concomitant]
     Indication: INFARCTION
     Dosage: DAILY DOSE 40 MG

REACTIONS (4)
  - Gastric ulcer [Unknown]
  - Gastrointestinal haemorrhage [Recovered/Resolved]
  - Lymphoma [Unknown]
  - Labelled drug-drug interaction medication error [None]
